FAERS Safety Report 20136946 (Version 1)
Quarter: 2021Q4

REPORT INFORMATION
  Report Type: Spontaneous
  Country: US (occurrence: None)
  Receive Date: 20211201
  Receipt Date: 20211201
  Transmission Date: 20220303
  Serious: No
  Sender: FDA-Public Use
  Company Number: None

PATIENT
  Age: 66 Year
  Sex: Male
  Weight: 88.65 kg

DRUGS (6)
  1. ABIRATERONE [Suspect]
     Active Substance: ABIRATERONE
     Indication: Prostate cancer
     Dosage: FREQUENCY : DAILY;?
     Route: 048
     Dates: start: 20210312
  2. ELIGARD [Concomitant]
     Active Substance: LEUPROLIDE ACETATE
  3. XGEVA [Concomitant]
     Active Substance: DENOSUMAB
  4. PREDNISONE [Concomitant]
     Active Substance: PREDNISONE
  5. Vitamin D 1.25mg [Concomitant]
  6. Glucosamine Chondroitin Complex 500-250mg [Concomitant]

REACTIONS (2)
  - Fatigue [None]
  - Hot flush [None]

NARRATIVE: CASE EVENT DATE: 20211201
